FAERS Safety Report 4530661-8 (Version None)
Quarter: 2004Q4

REPORT INFORMATION
  Report Type: 
  Country: None (occurrence: None)
  Receive Date: 20041217
  Receipt Date: 20030828
  Transmission Date: 20050328
  Serious: Yes (Hospitalization, Congenital Anomaly)
  Sender: FDA-Public Use
  Company Number: GB-ABBOTT-03P-167-0231242-00

PATIENT
  Sex: Female

DRUGS (2)
  1. EPILIM TABLETS [Suspect]
     Indication: DRUG EXPOSURE DURING PREGNANCY
  2. VIGABATRIN [Suspect]
     Indication: DRUG EXPOSURE DURING PREGNANCY

REACTIONS (12)
  - CONGENITAL ANOMALY [None]
  - CONGENITAL NOSE MALFORMATION [None]
  - DEVELOPMENTAL DELAY [None]
  - DRUG EXPOSURE DURING PREGNANCY [None]
  - FOETAL VALPROATE SYNDROME [None]
  - HYPERTONIA [None]
  - LOW SET EARS [None]
  - MUSCLE TWITCHING [None]
  - NIPPLE DISORDER [None]
  - PREMATURE BABY [None]
  - SPEECH DISORDER DEVELOPMENTAL [None]
  - STRABISMUS [None]
